FAERS Safety Report 6370847-3 (Version None)
Quarter: 2009Q3

REPORT INFORMATION
  Report Type: 
  Country: None (occurrence: None)
  Receive Date: 20090923
  Receipt Date: 20070905
  Transmission Date: 20100115
  Serious: No
  Sender: FDA-Public Use
  Company Number: US-ASTRAZENECA-2006UW24899

PATIENT
  Age: 13369 Day
  Sex: Male

DRUGS (11)
  1. SEROQUEL [Suspect]
     Indication: INSOMNIA
     Dosage: 25-300 MG
     Route: 048
     Dates: start: 20020419
  2. SEROQUEL [Suspect]
     Indication: ANXIETY
     Dosage: 25-300 MG
     Route: 048
     Dates: start: 20020419
  3. SEROQUEL [Suspect]
     Route: 048
  4. SEROQUEL [Suspect]
     Route: 048
  5. PAXIL [Concomitant]
     Dosage: 20-40 MG
     Route: 048
  6. GEODON [Concomitant]
     Dosage: 20-40 MG
     Route: 048
  7. LEXAPRO [Concomitant]
     Dosage: 10-20 MG
     Route: 048
  8. ABILIFY [Concomitant]
     Route: 065
  9. GLUCOPHAGE [Concomitant]
     Route: 065
  10. ACTOS [Concomitant]
     Route: 065
  11. ZYPREXA [Concomitant]
     Route: 065

REACTIONS (4)
  - DIABETES MELLITUS [None]
  - DYSPHORIA [None]
  - NERVOUSNESS [None]
  - PARANOIA [None]
